FAERS Safety Report 7269313-2 (Version None)
Quarter: 2011Q1

REPORT INFORMATION
  Report Type: 
  Country: None (occurrence: None)
  Receive Date: 20110124
  Receipt Date: 20110111
  Transmission Date: 20110831
  Serious: Yes (Other)
  Sender: FDA-Public Use
  Company Number: 1000018269

PATIENT
  Age: 52 Year
  Sex: Female

DRUGS (13)
  1. NOZINAN (LEVOMEPROMAZINE) (LEVOME PROMAZINE) [Concomitant]
  2. RENUTRYL (RENUTRYL) (RENUTRYL) [Concomitant]
  3. RIVOTRIL (CLONAZEPAM) (CLONAZEPAM) [Concomitant]
  4. ESCITALOPRAM [Suspect]
     Indication: DEPRESSION
     Dosage: SEE IMAGE, ORAL
     Route: 048
     Dates: start: 20061223, end: 20070325
  5. ESCITALOPRAM [Suspect]
     Indication: DEPRESSION
     Dosage: SEE IMAGE, ORAL
     Route: 048
     Dates: start: 20070326, end: 20070429
  6. ESCITALOPRAM [Suspect]
     Indication: DEPRESSION
     Dosage: SEE IMAGE, ORAL
     Route: 048
     Dates: start: 20070430, end: 20100801
  7. ESCITALOPRAM [Suspect]
     Indication: DEPRESSION
     Dosage: SEE IMAGE, ORAL
     Route: 048
     Dates: start: 20061220, end: 20061222
  8. ESCITALOPRAM [Suspect]
     Indication: DEPRESSION
     Dosage: SEE IMAGE, ORAL
     Route: 048
     Dates: start: 20100902, end: 20100928
  9. ESCITALOPRAM [Suspect]
     Indication: DEPRESSION
     Dosage: SEE IMAGE, ORAL
     Route: 048
     Dates: start: 20100929, end: 20101101
  10. ESCITALOPRAM [Suspect]
     Indication: DEPRESSION
     Dosage: SEE IMAGE, ORAL
     Route: 048
     Dates: start: 20100801, end: 20100901
  11. ESCITALOPRAM OXALATE [Suspect]
     Indication: DEPRESSION
     Dosage: ORAL, 3 GTT (3 GTT, 1 IN 1 D)
     Route: 048
     Dates: start: 20101101
  12. LEXOMIL (BROMAZEPAM) (BROMAZEPAM) [Concomitant]
  13. ZOLPIDEM TARTRATE [Concomitant]

REACTIONS (10)
  - TACHYCARDIA [None]
  - PARAESTHESIA [None]
  - FEELING DRUNK [None]
  - TENDON PAIN [None]
  - MUSCLE CONTRACTIONS INVOLUNTARY [None]
  - NAUSEA [None]
  - MYALGIA [None]
  - ARTHRALGIA [None]
  - TENDONITIS [None]
  - CYST [None]
